FAERS Safety Report 9378274 (Version 1)
Quarter: 2013Q3

REPORT INFORMATION
  Report Type: Spontaneous
  Country: CN (occurrence: CN)
  Receive Date: 20130701
  Receipt Date: 20130701
  Transmission Date: 20140515
  Serious: Yes (Other)
  Sender: FDA-Public Use
  Company Number: CN-009507513-1306CHN009391

PATIENT
  Age: 67 Year
  Sex: Male
  Weight: 70 kg

DRUGS (4)
  1. TIENAM [Suspect]
     Indication: CHRONIC OBSTRUCTIVE PULMONARY DISEASE
     Dosage: 0.5 G, TID
     Route: 041
     Dates: start: 20120505, end: 20120515
  2. TIENAM [Suspect]
     Indication: RESPIRATORY FAILURE
  3. TIENAM [Suspect]
     Indication: PNEUMONIA
  4. MOXIFLOXACIN HYDROCHLORIDE [Concomitant]
     Indication: LUNG INFECTION
     Dosage: UNK
     Dates: start: 20120505, end: 20120515

REACTIONS (3)
  - Endotracheal intubation [Unknown]
  - Language disorder [Recovering/Resolving]
  - Mechanical ventilation [Unknown]
